FAERS Safety Report 10932751 (Version 1)
Quarter: 2015Q1

REPORT INFORMATION
  Report Type: Spontaneous
  Country: US (occurrence: None)
  Receive Date: 20150319
  Receipt Date: 20150319
  Transmission Date: 20150721
  Serious: Yes (Hospitalization)
  Sender: FDA-Public Use
  Company Number: None

PATIENT
  Age: 59 Year
  Sex: Female
  Weight: 116.58 kg

DRUGS (14)
  1. ASPIRIN. [Concomitant]
     Active Substance: ASPIRIN
  2. D-2 [Concomitant]
  3. D2 VITAMINS [Concomitant]
  4. MULTIVITAMIN [Concomitant]
     Active Substance: VITAMINS
  5. BELVIQ (LORCASERIN HCL) [Concomitant]
  6. LANTUS [Concomitant]
     Active Substance: INSULIN GLARGINE
  7. LISINOPRIL. [Concomitant]
     Active Substance: LISINOPRIL
  8. ASPIRIN. [Concomitant]
     Active Substance: ASPIRIN
  9. CALCIUM [Concomitant]
     Active Substance: CALCIUM
  10. INVOKANA [Suspect]
     Active Substance: CANAGLIFLOZIN
     Indication: TYPE 2 DIABETES MELLITUS
     Dosage: BEFORE BREAKFAST, BY MOUTH
     Dates: start: 20141121, end: 20141206
  11. INSULIN (TE.... [Concomitant]
  12. LISINOPRIL. [Concomitant]
     Active Substance: LISINOPRIL
  13. MULTIVITAMINS [Concomitant]
     Active Substance: VITAMINS
  14. CALCIIUM [Concomitant]

REACTIONS (9)
  - Somnolence [None]
  - Pollakiuria [None]
  - Blood pressure increased [None]
  - Blood glucose increased [None]
  - Nausea [None]
  - Feeling cold [None]
  - Asthenia [None]
  - Thirst [None]
  - Feeling hot [None]

NARRATIVE: CASE EVENT DATE: 20141216
